FAERS Safety Report 16724874 (Version 2)
Quarter: 2019Q4

REPORT INFORMATION
  Report Type: Spontaneous
  Country: US (occurrence: US)
  Receive Date: 20190821
  Receipt Date: 20191023
  Transmission Date: 20200122
  Serious: No
  Sender: FDA-Public Use
  Company Number: US-PFIZER INC-2019357585

PATIENT
  Age: 39 Year
  Sex: Female

DRUGS (1)
  1. IBRANCE [Suspect]
     Active Substance: PALBOCICLIB
     Indication: BREAST CANCER FEMALE
     Dosage: 125 MG, CYCLIC (DAILY FOR 21 DAYS FOLLOWED BY A 7 DAY BREAK)
     Route: 048
     Dates: start: 201907

REACTIONS (3)
  - Fatigue [Recovering/Resolving]
  - Stomatitis [Recovering/Resolving]
  - Hot flush [Unknown]
